FAERS Safety Report 5515263-9 (Version None)
Quarter: 2007Q4

REPORT INFORMATION
  Report Type: 
  Country: None (occurrence: None)
  Receive Date: 20071113
  Receipt Date: 20071102
  Transmission Date: 20080405
  Serious: Yes (Other)
  Sender: FDA-Public Use
  Company Number: BE-MERCK-0709BEL00022

PATIENT
  Age: 47 Year
  Sex: Male
  Weight: 73 kg

DRUGS (9)
  1. SINGULAIR [Suspect]
     Indication: ASTHMA
     Route: 048
     Dates: start: 20010402, end: 20010609
  2. METHYLPREDNISOLONE [Concomitant]
     Indication: ASTHMA
     Route: 048
     Dates: start: 19980930
  3. METHYLPREDNISOLONE [Concomitant]
     Route: 048
     Dates: start: 19980529, end: 19980802
  4. METHYLPREDNISOLONE [Concomitant]
     Route: 048
     Dates: start: 19971223, end: 19980528
  5. METHYLPREDNISOLONE [Concomitant]
     Route: 048
     Dates: start: 19980803, end: 19980929
  6. CEFUROXIME AXETIL [Concomitant]
     Indication: CHRONIC SINUSITIS
     Route: 048
     Dates: start: 20010302, end: 20010312
  7. CEFUROXIME AXETIL [Concomitant]
     Indication: MAXILLARY ANTRUM OPERATION
     Route: 048
     Dates: start: 20010302, end: 20010312
  8. RANITIDINE HYDROCHLORIDE [Concomitant]
     Indication: GASTROOESOPHAGEAL REFLUX DISEASE
     Route: 048
     Dates: start: 19991201
  9. VALSARTAN [Concomitant]
     Indication: HYPERTENSION
     Route: 048
     Dates: start: 20010101

REACTIONS (1)
  - ALLERGIC GRANULOMATOUS ANGIITIS [None]
